FAERS Safety Report 23660471 (Version 4)
Quarter: 2024Q3

REPORT INFORMATION
  Report Type: Report from Study
  Country: US (occurrence: US)
  Receive Date: 20240322
  Receipt Date: 20240810
  Transmission Date: 20241016
  Serious: Yes (Other)
  Sender: ABBVIE
  Company Number: US-ABBVIE-5685003

PATIENT
  Sex: Female

DRUGS (1)
  1. SKYRIZI [Suspect]
     Active Substance: RISANKIZUMAB-RZAA
     Indication: Psoriasis
     Route: 058
     Dates: start: 20230804

REACTIONS (8)
  - Limb operation [Unknown]
  - Exposure to communicable disease [Unknown]
  - Post procedural swelling [Not Recovered/Not Resolved]
  - Bone operation [Unknown]
  - Musculoskeletal disorder [Unknown]
  - Tendon rupture [Unknown]
  - Post procedural complication [Unknown]
  - Localised infection [Unknown]

NARRATIVE: CASE EVENT DATE: 20240101
